FAERS Safety Report 8260934-7 (Version None)
Quarter: 2012Q2

REPORT INFORMATION
  Report Type: 
  Country: None (occurrence: None)
  Receive Date: 20120405
  Receipt Date: 20120321
  Transmission Date: 20120825
  Serious: No
  Sender: FDA-Public Use
  Company Number: US-JNJFOC-20120311702

PATIENT
  Sex: Female
  Weight: 99.79 kg

DRUGS (18)
  1. DURAGESIC-100 [Suspect]
     Indication: NEUROPATHY PERIPHERAL
     Route: 062
     Dates: start: 20070101, end: 20070101
  2. OXYCODONE HCL [Concomitant]
     Indication: BREAKTHROUGH PAIN
     Route: 048
     Dates: start: 20100101
  3. FENTANYL-100 [Suspect]
     Route: 062
     Dates: start: 20090101
  4. FENTANYL-100 [Suspect]
     Indication: NEUROPATHY PERIPHERAL
     Route: 062
     Dates: start: 20090101
  5. FENTANYL CITRATE [Suspect]
     Route: 062
     Dates: start: 20080101, end: 20090101
  6. TRUVADA [Concomitant]
     Indication: HIV INFECTION
     Dosage: 150/300 MG
     Route: 048
     Dates: start: 20040101
  7. DURAGESIC-100 [Suspect]
     Indication: HIV INFECTION
     Route: 062
     Dates: start: 20070101, end: 20070101
  8. FENTANYL-100 [Suspect]
     Indication: NEUROPATHY PERIPHERAL
     Route: 062
     Dates: start: 20090101
  9. FENTANYL-100 [Suspect]
     Indication: HIV INFECTION
     Route: 062
     Dates: start: 20090101
  10. DURAGESIC-100 [Suspect]
     Indication: HIV INFECTION
     Dates: start: 20070101, end: 20090101
  11. FENTANYL-100 [Suspect]
     Indication: HIV INFECTION
     Route: 062
     Dates: start: 20080101, end: 20090101
  12. FENTANYL-100 [Suspect]
     Route: 062
     Dates: start: 20080101, end: 20090101
  13. FENTANYL CITRATE [Suspect]
     Indication: HIV INFECTION
     Route: 062
     Dates: start: 20090101, end: 20090101
  14. FENTANYL CITRATE [Suspect]
     Indication: NEUROPATHY PERIPHERAL
     Route: 062
     Dates: start: 20090101, end: 20090101
  15. NORVIR [Concomitant]
     Indication: HIV INFECTION
     Route: 048
     Dates: start: 20040101
  16. REYATAZ [Concomitant]
     Indication: HIV INFECTION
     Route: 048
     Dates: start: 20040101
  17. DURAGESIC-100 [Suspect]
     Indication: NEUROPATHY PERIPHERAL
     Dates: start: 20070101, end: 20090101
  18. FENTANYL CITRATE [Suspect]
     Route: 062
     Dates: start: 20080101, end: 20090101

REACTIONS (8)
  - ANXIETY [None]
  - HYPERTENSION [None]
  - INTERCEPTED MEDICATION ERROR [None]
  - APPLICATION SITE REACTION [None]
  - PRODUCT QUALITY ISSUE [None]
  - WRONG TECHNIQUE IN DRUG USAGE PROCESS [None]
  - PRODUCT ADHESION ISSUE [None]
  - NEUROPATHY PERIPHERAL [None]
